FAERS Safety Report 9337740 (Version 1)
Quarter: 2013Q2

REPORT INFORMATION
  Report Type: Spontaneous
  Country: KR (occurrence: KR)
  Receive Date: 20130607
  Receipt Date: 20130607
  Transmission Date: 20140414
  Serious: Yes (Hospitalization)
  Sender: FDA-Public Use
  Company Number: KR-MYLANLABS-2013S1011539

PATIENT
  Age: 80 Year
  Sex: Female
  Weight: 53 kg

DRUGS (5)
  1. PROPOFOL [Suspect]
     Indication: INDUCTION OF ANAESTHESIA
     Route: 065
  2. LIDOCAINE [Suspect]
     Indication: INDUCTION OF ANAESTHESIA
     Route: 065
  3. ROCURONIUM BROMIDE [Suspect]
     Route: 065
  4. DESFLURANE [Suspect]
     Route: 065
  5. GLYCOPYRROLATE [Concomitant]
     Indication: PREMEDICATION
     Dosage: 30 MINUTES BEFORE ANAESTHESIA
     Route: 030

REACTIONS (1)
  - Atrioventricular block complete [Recovered/Resolved]
